FAERS Safety Report 8930116 (Version 3)
Quarter: 2013Q1

REPORT INFORMATION
  Report Type: Spontaneous
  Country: BR (occurrence: BR)
  Receive Date: 20121128
  Receipt Date: 20130213
  Transmission Date: 20140127
  Serious: Yes (Hospitalization, Disabling, Other)
  Sender: FDA-Public Use
  Company Number: BR-ASTRAZENECA-2012SE88878

PATIENT
  Age: 84 Year
  Sex: Female
  Weight: 45 kg

DRUGS (7)
  1. PROPRANOLOL [Suspect]
     Indication: TREMOR
     Route: 048
     Dates: start: 201207
  2. SEROQUEL XRO [Suspect]
     Indication: DEMENTIA ALZHEIMER^S TYPE
     Route: 048
     Dates: start: 20121018
  3. RISPERIDON [Concomitant]
     Indication: ANXIETY
     Route: 048
  4. RISPERIDON [Concomitant]
     Indication: AGGRESSION
     Route: 048
  5. B VITAMIN COMPLEX [Concomitant]
     Route: 048
  6. RIVOTRIL [Concomitant]
     Indication: DEMENTIA ALZHEIMER^S TYPE
  7. RIVOTRIL [Concomitant]
     Indication: ANXIETY

REACTIONS (5)
  - Upper limb fracture [Recovered/Resolved with Sequelae]
  - Gait disturbance [Not Recovered/Not Resolved]
  - Urinary tract infection [Recovered/Resolved]
  - Pain in extremity [Not Recovered/Not Resolved]
  - Off label use [Not Recovered/Not Resolved]
